FAERS Safety Report 7815386-5 (Version None)
Quarter: 2011Q4

REPORT INFORMATION
  Report Type: 
  Country: None (occurrence: None)
  Receive Date: 20111014
  Receipt Date: 20111007
  Transmission Date: 20120403
  Serious: Yes (Hospitalization)
  Sender: FDA-Public Use
  Company Number: FR-MDL-2011ML000127

PATIENT
  Age: 33 Year
  Sex: Female

DRUGS (1)
  1. BUPRENORPHINE [Suspect]
     Indication: PRODUCT USED FOR UNKNOWN INDICATION
     Route: 013

REACTIONS (5)
  - LIVIDITY [None]
  - FOREIGN BODY [None]
  - SKIN NECROSIS [None]
  - ARTERIAL THROMBOSIS LIMB [None]
  - ANEURYSM [None]
